FAERS Safety Report 11205179 (Version 2)
Quarter: 2015Q2

REPORT INFORMATION
  Report Type: Spontaneous
  Country: IT (occurrence: IT)
  Receive Date: 20150622
  Receipt Date: 20150629
  Transmission Date: 20150821
  Serious: Yes (Hospitalization)
  Sender: FDA-Public Use
  Company Number: IT-ROCHE-1593601

PATIENT
  Age: 70 Year
  Sex: Male

DRUGS (3)
  1. RISPERDAL [Concomitant]
     Active Substance: RISPERIDONE
     Dosage: ^25 MG/2ML 1 VIAL +1 PRE-FILLED SYRINGE OF SOLVENT
     Route: 030
  2. RIVOTRIL [Suspect]
     Active Substance: CLONAZEPAM
     Indication: PRODUCT USED FOR UNKNOWN INDICATION
     Dosage: 0.5 MG TABLETS^ 20 TABLETS
     Route: 048
     Dates: start: 20150210, end: 20150210
  3. TRITTICO [Suspect]
     Active Substance: TRAZODONE HYDROCHLORIDE
     Indication: PRODUCT USED FOR UNKNOWN INDICATION
     Dosage: (50 MG FILM-COATED TABLETS) 30 TABLETS
     Route: 048
     Dates: start: 20150210, end: 20150210

REACTIONS (4)
  - Drop attacks [Unknown]
  - Rhabdomyolysis [Unknown]
  - Rib fracture [Unknown]
  - Drug abuse [Unknown]

NARRATIVE: CASE EVENT DATE: 20150210
